FAERS Safety Report 10398009 (Version 2)
Quarter: 2014Q4

REPORT INFORMATION
  Report Type: Report from Study
  Country: FI (occurrence: FI)
  Receive Date: 20140821
  Receipt Date: 20141030
  Transmission Date: 20150528
  Serious: Yes (Hospitalization, Other)
  Sender: FDA-Public Use
  Company Number: SE-BRISTOL-MYERS SQUIBB COMPANY-21301155

PATIENT
  Age: 21 Year
  Sex: Female
  Weight: 55.5 kg

DRUGS (11)
  1. ACETYLSALICYLIC ACID [Concomitant]
     Active Substance: ASPIRIN
  2. METHOTREXATE (METHOTREXATE SODIUM) [Suspect]
     Active Substance: METHOTREXATE SODIUM
     Indication: RHEUMATOID ARTHRITIS
     Dosage: 1 DF=25 NO UNITS/WEEK?12AUG14
     Route: 048
     Dates: start: 20140604
  3. TOLFENAMIC ACID [Concomitant]
     Active Substance: TOLFENAMIC ACID
     Indication: RHEUMATOID ARTHRITIS
     Dosage: TABS
     Dates: start: 20140730
  4. FOLIC ACID. [Concomitant]
     Active Substance: FOLIC ACID
     Indication: PROPHYLAXIS
     Dosage: TABS
     Dates: start: 20140604
  5. ARCOXIA [Concomitant]
     Active Substance: ETORICOXIB
     Indication: ARTHRALGIA
  6. PARA-TABS [Concomitant]
     Active Substance: ACETAMINOPHEN
  7. VITAMIN D [Concomitant]
     Active Substance: CHOLECALCIFEROL
  8. ESOMEPRAZOLE [Concomitant]
     Active Substance: ESOMEPRAZOLE
     Indication: GASTROINTESTINAL DISORDER
     Dosage: TABS
     Dates: start: 20140108
  9. ABATACEPT SUBQ INJECTION 125MG/ML [Suspect]
     Active Substance: ABATACEPT
     Indication: RHEUMATOID ARTHRITIS
     Dosage: 1 DF=125 NO UNITS/WEEK
     Route: 058
     Dates: start: 20140604, end: 20140812
  10. IMOVANE [Concomitant]
     Active Substance: ZOPICLONE
     Indication: INSOMNIA
  11. KALCIPOS-D [Concomitant]
     Active Substance: CALCIUM CARBONATE\CHOLECALCIFEROL
     Indication: PROPHYLAXIS

REACTIONS (18)
  - Dizziness [Unknown]
  - Cough [Unknown]
  - Upper respiratory tract infection [Unknown]
  - Arrhythmia [Recovered/Resolved]
  - Asthenia [Unknown]
  - Hypoaesthesia [Unknown]
  - Neck pain [Unknown]
  - Balance disorder [Unknown]
  - Diplopia [Unknown]
  - Palpitations [Unknown]
  - Transient ischaemic attack [Not Recovered/Not Resolved]
  - Oropharyngeal pain [Unknown]
  - Headache [Recovered/Resolved]
  - Fatigue [Unknown]
  - Vertigo [Unknown]
  - Urticaria [Unknown]
  - Nystagmus [Unknown]
  - Tremor [Unknown]

NARRATIVE: CASE EVENT DATE: 20140610
